FAERS Safety Report 25833736 (Version 1)
Quarter: 2025Q3

REPORT INFORMATION
  Report Type: Report from Study
  Country: GB (occurrence: GB)
  Receive Date: 20250923
  Receipt Date: 20250923
  Transmission Date: 20251021
  Serious: Yes (Hospitalization, Other)
  Sender: ABBVIE
  Company Number: GB-ABBVIE-6467746

PATIENT
  Sex: Male

DRUGS (1)
  1. RINVOQ [Suspect]
     Active Substance: UPADACITINIB
     Indication: Psoriatic arthropathy
     Dosage: FORM STRENGTH: RINVOQ 15MG, 28 X RINVOQ 15MG
     Route: 048
     Dates: start: 202410, end: 20250824

REACTIONS (2)
  - Umbilical hernia [Unknown]
  - Postoperative wound infection [Unknown]
